FAERS Safety Report 16113580 (Version 1)
Quarter: 2019Q1

REPORT INFORMATION
  Report Type: Spontaneous
  Country: US (occurrence: US)
  Receive Date: 20190325
  Receipt Date: 20190325
  Transmission Date: 20190418
  Serious: No
  Sender: FDA-Public Use
  Company Number: US-ALLERGAN-1843307US

PATIENT
  Age: 62 Year
  Sex: Female

DRUGS (7)
  1. LATISSE [Suspect]
     Active Substance: BIMATOPROST
     Indication: GROWTH OF EYELASHES
     Dosage: 2 GTT, QHS
     Route: 061
  2. LATISSE [Suspect]
     Active Substance: BIMATOPROST
     Dosage: 2 GTT, QHS
     Route: 061
  3. EYELINER [Concomitant]
     Dosage: UNK
  4. LATISSE [Suspect]
     Active Substance: BIMATOPROST
     Dosage: 2 GTT, QHS
     Route: 061
     Dates: start: 201803
  5. OVER-THE-COUNTER EYE DROPS [Concomitant]
     Dosage: UNK
     Route: 047
  6. MASCARA [Concomitant]
     Dosage: UNK
  7. UNKNOWN MEDICATIONS [Concomitant]
     Active Substance: UNSPECIFIED INGREDIENT
     Indication: BACK DISORDER

REACTIONS (2)
  - Drug ineffective [Unknown]
  - Eyelid irritation [Recovered/Resolved]

NARRATIVE: CASE EVENT DATE: 201803
